FAERS Safety Report 8610007-6 (Version None)
Quarter: 2012Q3

REPORT INFORMATION
  Report Type: 
  Country: None (occurrence: None)
  Receive Date: 20120822
  Receipt Date: 20120809
  Transmission Date: 20120928
  Serious: Yes (Other)
  Sender: FDA-Public Use
  Company Number: AR-AMGEN-ARGSP2012050025

PATIENT
  Age: 58 Year
  Sex: Female

DRUGS (3)
  1. SALMETEROL [Concomitant]
     Dosage: UNK
  2. ENBREL [Suspect]
     Indication: RHEUMATOID ARTHRITIS
     Dosage: 25 MG, 2X/WEEK
     Route: 058
     Dates: start: 20091001
  3. LOSARTAN POTASSIUM [Concomitant]

REACTIONS (1)
  - ASTHMATIC CRISIS [None]
